FAERS Safety Report 4886002-X (Version None)
Quarter: 2006Q1

REPORT INFORMATION
  Report Type: 
  Country: None (occurrence: None)
  Receive Date: 20060118
  Receipt Date: 20060118
  Transmission Date: 20060701
  Serious: Yes (Hospitalization)
  Sender: FDA-Public Use
  Company Number: None

PATIENT
  Age: 54 Year
  Sex: Male
  Weight: 78.3 kg

DRUGS (1)
  1. OPTIMARK [Suspect]
     Indication: VENTRICULAR DYSFUNCTION
     Dosage: 31CC ONCE IV BOLUS
     Route: 040
     Dates: start: 20040312, end: 20040312

REACTIONS (1)
  - WHITE BLOOD CELL COUNT INCREASED [None]
